FAERS Safety Report 7508015-1 (Version None)
Quarter: 2011Q2

REPORT INFORMATION
  Report Type: 
  Country: None (occurrence: None)
  Receive Date: 20110519
  Receipt Date: 20110504
  Transmission Date: 20111010
  Serious: Yes (Other)
  Sender: FDA-Public Use
  Company Number: 2011MA005258

PATIENT
  Age: 48 Year
  Sex: Male

DRUGS (5)
  1. ATORVASTATIN [Concomitant]
  2. FEVERALL [Suspect]
     Indication: PYREXIA
  3. PANTROPRAZOLE [Concomitant]
  4. MULTI-VITAMIN [Concomitant]
  5. FERROUS SULFATE TAB [Concomitant]

REACTIONS (4)
  - HUMAN HERPESVIRUS 6 INFECTION [None]
  - HEPATIC ENZYME INCREASED [None]
  - DRUG RASH WITH EOSINOPHILIA AND SYSTEMIC SYMPTOMS [None]
  - DRUG HYPERSENSITIVITY [None]
